FAERS Safety Report 5533831-5 (Version None)
Quarter: 2007Q4

REPORT INFORMATION
  Report Type: 
  Country: None (occurrence: None)
  Receive Date: 20071129
  Receipt Date: 20071114
  Transmission Date: 20080405
  Serious: Yes (Life-Threatening, Hospitalization)
  Sender: FDA-Public Use
  Company Number: 163743ISR

PATIENT
  Age: 59 Year
  Sex: Male

DRUGS (3)
  1. TRAZODONE HCL [Suspect]
     Dosage: 100 MG ORAL
     Route: 048
     Dates: start: 20061018
  2. ZUCLOPENTHIXOL [Suspect]
     Indication: PSYCHOTIC DISORDER
     Dosage: 200 MG, 1 IN 2 WK, INTRAMUSCULAR, 50 MG, INTRAMUSCULAR, 2 MG, ORAL
     Route: 030
     Dates: start: 20061004, end: 20061123
  3. PIMOZIDE [Suspect]
     Dates: start: 20061124

REACTIONS (7)
  - BLOOD CREATINE PHOSPHOKINASE INCREASED [None]
  - CONSTIPATION [None]
  - EXTRAPYRAMIDAL DISORDER [None]
  - MUSCULOSKELETAL STIFFNESS [None]
  - NEUROLEPTIC MALIGNANT SYNDROME [None]
  - PARKINSONIAN GAIT [None]
  - URINARY RETENTION [None]
